FAERS Safety Report 8360403-X (Version None)
Quarter: 2012Q2

REPORT INFORMATION
  Report Type: 
  Country: None (occurrence: None)
  Receive Date: 20120515
  Receipt Date: 20120514
  Transmission Date: 20120825
  Serious: No
  Sender: FDA-Public Use
  Company Number: US-JNJFOC-20120506207

PATIENT
  Sex: Female
  Weight: 58.97 kg

DRUGS (5)
  1. AMBIEN CR [Concomitant]
     Indication: INSOMNIA
     Dosage: AS NEEDED
     Route: 048
     Dates: start: 20020101
  2. PHENERGAN [Concomitant]
     Dosage: AS NEEDED
     Route: 048
     Dates: start: 20070101
  3. DURAGESIC-100 [Suspect]
     Indication: PAIN
     Route: 062
     Dates: start: 20110101
  4. AMBIEN [Concomitant]
     Indication: INSOMNIA
     Route: 048
     Dates: start: 20020101
  5. NORCO [Concomitant]
     Indication: PAIN
     Dosage: EVERY 4-6 HOUR
     Route: 048
     Dates: start: 20020101

REACTIONS (6)
  - PRODUCT QUALITY ISSUE [None]
  - ANXIETY [None]
  - WRONG TECHNIQUE IN DRUG USAGE PROCESS [None]
  - PAIN [None]
  - MYALGIA [None]
  - WITHDRAWAL SYNDROME [None]
